FAERS Safety Report 19473278 (Version 2)
Quarter: 2021Q3

REPORT INFORMATION
  Report Type: Spontaneous
  Country: BE (occurrence: BE)
  Receive Date: 20210629
  Receipt Date: 20210702
  Transmission Date: 20211014
  Serious: Yes (Hospitalization)
  Sender: FDA-Public Use
  Company Number: NVSC2021BE145208

PATIENT
  Age: 12 Year
  Sex: Male

DRUGS (6)
  1. PROPRANOLOL [Suspect]
     Active Substance: PROPRANOLOL HYDROCHLORIDE
     Indication: HYPERAROUSAL
     Dosage: UNK
     Route: 065
  2. METHYLPHENIDATE. [Concomitant]
     Active Substance: METHYLPHENIDATE
     Indication: ATTENTION DEFICIT HYPERACTIVITY DISORDER
     Dosage: UNK
     Route: 065
  3. RISPERIDONE. [Concomitant]
     Active Substance: RISPERIDONE
     Indication: BEHAVIOUR DISORDER
     Dosage: UNK
     Route: 065
  4. PIPAMPERONE [Concomitant]
     Active Substance: PIPAMPERONE
     Indication: BEHAVIOUR DISORDER
     Dosage: UNK
     Route: 065
  5. ARIPIPRAZOLE. [Suspect]
     Active Substance: ARIPIPRAZOLE
     Indication: BEHAVIOUR DISORDER
     Dosage: 15 MILLIGRAM
     Route: 065
  6. QUETIAPINE. [Suspect]
     Active Substance: QUETIAPINE
     Indication: BEHAVIOUR DISORDER
     Dosage: 800 MILLIGRAM, QD (TABLET)
     Route: 048

REACTIONS (4)
  - Tardive dyskinesia [Recovering/Resolving]
  - Loss of personal independence in daily activities [Recovering/Resolving]
  - Product use issue [Unknown]
  - Anxiety [Recovering/Resolving]
